FAERS Safety Report 4830632-8 (Version None)
Quarter: 2005Q4

REPORT INFORMATION
  Report Type: 
  Country: None (occurrence: None)
  Receive Date: 20051114
  Receipt Date: 20051025
  Transmission Date: 20060501
  Serious: Yes (Hospitalization)
  Sender: FDA-Public Use
  Company Number: 430013E05GBR

PATIENT
  Age: 64 Year
  Sex: Male

DRUGS (6)
  1. NOVANTRONE [Suspect]
     Indication: IMMUNE SYSTEM DISORDER
     Dates: start: 20050101, end: 20050725
  2. FLUDARABINE [Suspect]
     Indication: IMMUNOSUPPRESSION
     Dosage: 45 MG INTRAVENOUS
     Route: 042
     Dates: start: 20050101, end: 20050725
  3. DEXAMETHASONE [Concomitant]
  4. FERROUS SULFATE TAB [Concomitant]
  5. ESOMEPRAZOLE [Concomitant]
  6. TERBUTALINE SULFATE [Concomitant]

REACTIONS (3)
  - DYSPNOEA [None]
  - LOWER RESPIRATORY TRACT INFECTION [None]
  - OXYGEN SATURATION DECREASED [None]
